FAERS Safety Report 9126771 (Version 1)
Quarter: 2013Q1

REPORT INFORMATION
  Report Type: Spontaneous
  Country: US (occurrence: US)
  Receive Date: 20130228
  Receipt Date: 20130228
  Transmission Date: 20140127
  Serious: Yes (Other)
  Sender: FDA-Public Use
  Company Number: US-009507513-1302USA010368

PATIENT
  Age: 30 Year
  Sex: Female

DRUGS (2)
  1. SAPHRIS [Suspect]
     Dosage: 5 MG, QD
     Route: 060
     Dates: start: 20130219, end: 20130220
  2. LITHIUM [Concomitant]
     Dosage: UNK

REACTIONS (2)
  - Convulsion [Recovering/Resolving]
  - Inappropriate schedule of drug administration [Unknown]
